FAERS Safety Report 12747793 (Version 1)
Quarter: 2016Q3

REPORT INFORMATION
  Report Type: Spontaneous
  Country: US (occurrence: US)
  Receive Date: 20160915
  Receipt Date: 20160915
  Transmission Date: 20161109
  Serious: No
  Sender: FDA-Public Use
  Company Number: US-JAZZ-2016-US-010085

PATIENT
  Sex: Female

DRUGS (39)
  1. XYREM [Suspect]
     Active Substance: SODIUM OXYBATE
     Indication: NARCOLEPSY
     Dosage: 1.5 G, BID
     Route: 048
     Dates: start: 201302, end: 201302
  2. IBUPROFEN. [Concomitant]
     Active Substance: IBUPROFEN
  3. LAMICTAL [Concomitant]
     Active Substance: LAMOTRIGINE
  4. OXYBUTYNIN CHLORIDE. [Concomitant]
     Active Substance: OXYBUTYNIN CHLORIDE
  5. METHYLPHENIDATE. [Concomitant]
     Active Substance: METHYLPHENIDATE
  6. FOLIC ACID. [Concomitant]
     Active Substance: FOLIC ACID
  7. QUETIAPINE FUMARATE. [Concomitant]
     Active Substance: QUETIAPINE FUMARATE
  8. LACTAID FAST ACT [Concomitant]
     Active Substance: LACTASE
  9. NITROFURANTOIN. [Concomitant]
     Active Substance: NITROFURANTOIN
  10. BACTRIM [Concomitant]
     Active Substance: SULFAMETHOXAZOLE\TRIMETHOPRIM
  11. XYREM [Suspect]
     Active Substance: SODIUM OXYBATE
     Dosage: DOSE ADJUSTMENTS
     Route: 048
     Dates: start: 201302, end: 201501
  12. XYREM [Suspect]
     Active Substance: SODIUM OXYBATE
     Dosage: 3.75 G, FIRST DOSE
     Route: 048
     Dates: start: 201501
  13. BUPROPION. [Concomitant]
     Active Substance: BUPROPION
  14. CETIRIZINE HCL [Concomitant]
     Active Substance: CETIRIZINE HYDROCHLORIDE
  15. ZYRTEC [Concomitant]
     Active Substance: CETIRIZINE HYDROCHLORIDE
  16. PYRIDIUM [Concomitant]
     Active Substance: PHENAZOPYRIDINE
  17. PRAMIPEXOLE DIHYDROCHLORIDE. [Concomitant]
     Active Substance: PRAMIPEXOLE DIHYDROCHLORIDE
  18. ROZEREM [Concomitant]
     Active Substance: RAMELTEON
  19. MAGNESIUM [Concomitant]
     Active Substance: MAGNESIUM
  20. MODAFINIL. [Concomitant]
     Active Substance: MODAFINIL
  21. INVEGA [Concomitant]
     Active Substance: PALIPERIDONE
  22. PHENAZOPYRIDINE. [Concomitant]
     Active Substance: PHENAZOPYRIDINE
  23. MIGRANAL [Concomitant]
     Active Substance: DIHYDROERGOTAMINE MESYLATE
  24. ONDANSETRON [Concomitant]
     Active Substance: ONDANSETRON
  25. VITAMIN D [Concomitant]
     Active Substance: CHOLECALCIFEROL
  26. ALPRAZOLAM. [Concomitant]
     Active Substance: ALPRAZOLAM
  27. OXYBUTYNIN CHLORIDE. [Concomitant]
     Active Substance: OXYBUTYNIN CHLORIDE
  28. TRAMADOL. [Concomitant]
     Active Substance: TRAMADOL
  29. DICLOFENAC POTASSIUM. [Concomitant]
     Active Substance: DICLOFENAC POTASSIUM
  30. CIPRO [Concomitant]
     Active Substance: CIPROFLOXACIN HYDROCHLORIDE
  31. KETOROLAC [Concomitant]
     Active Substance: KETOROLAC\KETOROLAC TROMETHAMINE
  32. PROVIGIL [Concomitant]
     Active Substance: MODAFINIL
  33. TRAMADOL. [Concomitant]
     Active Substance: TRAMADOL
  34. AMITRIPTYLINE HCL [Concomitant]
     Active Substance: AMITRIPTYLINE
  35. XYREM [Suspect]
     Active Substance: SODIUM OXYBATE
     Dosage: 4.5 G, SECOND DOSE
     Route: 048
     Dates: start: 201501
  36. ALPRAZOLAM. [Concomitant]
     Active Substance: ALPRAZOLAM
  37. BUPROPION. [Concomitant]
     Active Substance: BUPROPION
  38. METHOCARBAMOL. [Concomitant]
     Active Substance: METHOCARBAMOL
  39. ABILIFY [Concomitant]
     Active Substance: ARIPIPRAZOLE

REACTIONS (1)
  - Malaise [Not Recovered/Not Resolved]
